FAERS Safety Report 25702887 (Version 2)
Quarter: 2025Q4

REPORT INFORMATION
  Report Type: Report from Study
  Country: CA (occurrence: CA)
  Receive Date: 20250819
  Receipt Date: 20251009
  Transmission Date: 20260118
  Serious: Yes (Hospitalization, Other)
  Sender: HLS THERAPEUTICS
  Company Number: CA-HLS-202501995

PATIENT
  Age: 57 Year
  Sex: Male

DRUGS (7)
  1. CLOZARIL [Suspect]
     Active Substance: CLOZAPINE
     Indication: Schizophrenia
     Route: 048
     Dates: start: 19970820
  2. CLOZARIL [Suspect]
     Active Substance: CLOZAPINE
     Indication: Schizophrenia
     Dosage: DOSE CECREASED
     Route: 048
     Dates: end: 20250924
  3. Epiral [Concomitant]
     Indication: Anxiety
     Dosage: BID
     Route: 048
     Dates: start: 2010
  4. Epiral [Concomitant]
     Indication: Schizophrenia
     Dosage: BID
     Route: 048
     Dates: start: 2010
  5. SERTRALINE [Concomitant]
     Active Substance: SERTRALINE HYDROCHLORIDE
     Indication: Anxiety
     Dosage: TWICE DAILY
     Route: 048
     Dates: start: 2020
  6. QUETIAPINE [Concomitant]
     Active Substance: QUETIAPINE
     Indication: Anxiety
     Dosage: 100 MG PM+50 HS
     Route: 048
  7. QUETIAPINE [Concomitant]
     Active Substance: QUETIAPINE
     Indication: Anxiety
     Dosage: DOSE DECREASED AT THIS DOSE 30-JUN-2025 BUT PREVIOUSLY TAKEN FOR YEARS (DECREASED TO 50 MG HS ON JUL
     Route: 048

REACTIONS (7)
  - Toxicity to various agents [Not Recovered/Not Resolved]
  - Constipation [Recovered/Resolved]
  - General physical health deterioration [Unknown]
  - Somnolence [Recovered/Resolved]
  - Dependent personality disorder [Recovered/Resolved]
  - Physical deconditioning [Unknown]
  - Delirium [Unknown]

NARRATIVE: CASE EVENT DATE: 20250701
